FAERS Safety Report 18806432 (Version 2)
Quarter: 2021Q3

REPORT INFORMATION
  Report Type: Spontaneous
  Country: US (occurrence: US)
  Receive Date: 20210129
  Receipt Date: 20210723
  Transmission Date: 20211014
  Serious: Yes (Hospitalization)
  Sender: FDA-Public Use
  Company Number: US-EMMAUS MEDICAL, INC.-EMM202101-000003

PATIENT
  Age: 44 Year
  Sex: Female
  Weight: 54.48 kg

DRUGS (3)
  1. ENDARI [Suspect]
     Active Substance: GLUTAMINE
     Indication: SICKLE CELL DISEASE
     Route: 048
     Dates: start: 20201224
  2. ENDARI [Suspect]
     Active Substance: GLUTAMINE
     Route: 048
  3. OXBRYTA [Concomitant]
     Active Substance: VOXELOTOR
     Indication: HAEMOGLOBIN INCREASED

REACTIONS (5)
  - Therapy cessation [Unknown]
  - Drug ineffective [Unknown]
  - Sickle cell anaemia with crisis [Unknown]
  - Decreased appetite [Recovered/Resolved]
  - Nausea [Recovered/Resolved]
